FAERS Safety Report 25888915 (Version 1)
Quarter: 2025Q4

REPORT INFORMATION
  Report Type: Spontaneous
  Country: IN (occurrence: IN)
  Receive Date: 20251007
  Receipt Date: 20251007
  Transmission Date: 20260118
  Serious: Yes (Hospitalization)
  Sender: PANACEA BIOTEC PHARMA LIMITED
  Company Number: IN-PBT-010827

PATIENT
  Age: 52 Year
  Sex: Male

DRUGS (10)
  1. TACROLIMUS [Interacting]
     Active Substance: TACROLIMUS
     Indication: Prophylaxis against transplant rejection
     Route: 042
  2. MYCOPHENOLATE MOFETIL [Suspect]
     Active Substance: MYCOPHENOLATE MOFETIL
     Indication: Prophylaxis against transplant rejection
     Route: 065
  3. RITONAVIR [Interacting]
     Active Substance: RITONAVIR
     Indication: HIV test positive
     Route: 065
  4. FLUCONAZOLE [Interacting]
     Active Substance: FLUCONAZOLE
     Indication: Candida infection
     Route: 065
  5. PREDNISOLONE [Suspect]
     Active Substance: PREDNISOLONE
     Indication: Prophylaxis against transplant rejection
     Route: 065
  6. LAMIVUDINE [Concomitant]
     Active Substance: LAMIVUDINE
     Indication: HIV test positive
     Route: 065
  7. ABACAVIR [Concomitant]
     Active Substance: ABACAVIR
     Indication: HIV test positive
     Route: 065
  8. DOLUTEGRAVIR [Concomitant]
     Active Substance: DOLUTEGRAVIR
     Indication: HIV test positive
     Route: 065
  9. ATAZANAVIR [Concomitant]
     Active Substance: ATAZANAVIR
     Indication: HIV test positive
     Route: 065
  10. TACROLIMUS [Interacting]
     Active Substance: TACROLIMUS
     Indication: Prophylaxis against transplant rejection
     Dosage: DOSE BY NEARLY 57% OF THE ORIGINAL DOSE 1.75-1 MG
     Route: 042

REACTIONS (4)
  - Drug interaction [Unknown]
  - Drug level increased [Recovered/Resolved]
  - Toxicity to various agents [Recovered/Resolved]
  - Oral candidiasis [Unknown]
